FAERS Safety Report 18335636 (Version 1)
Quarter: 2020Q4

REPORT INFORMATION
  Report Type: Other
  Country: GB (occurrence: GB)
  Receive Date: 20201001
  Receipt Date: 20201001
  Transmission Date: 20210113
  Serious: Yes (Other)
  Sender: FDA-Public Use
  Company Number: GB-NAVINTA LLC-000100

PATIENT
  Sex: Female

DRUGS (2)
  1. INDOMETHACIN. [Suspect]
     Active Substance: INDOMETHACIN
     Indication: TRICUSPID VALVE DISEASE
     Dosage: MATERNAL INDOMETHACIN 100MG THREE TIMES A DAY
  2. INDOMETHACIN. [Suspect]
     Active Substance: INDOMETHACIN
     Indication: TRICUSPID VALVE DISEASE
     Dosage: 50 MG TDS

REACTIONS (3)
  - Exposure during pregnancy [Unknown]
  - Condition aggravated [Recovered/Resolved]
  - Oligohydramnios [Recovered/Resolved]
